FAERS Safety Report 19923845 (Version 2)
Quarter: 2022Q1

REPORT INFORMATION
  Report Type: Spontaneous
  Country: FR (occurrence: FR)
  Receive Date: 20211006
  Receipt Date: 20220131
  Transmission Date: 20220423
  Serious: Yes (Other)
  Sender: FDA-Public Use
  Company Number: FR-PFIZER INC-202101257936

PATIENT
  Age: 15 Year
  Sex: Female

DRUGS (1)
  1. SOMAVERT [Suspect]
     Active Substance: PEGVISOMANT
     Indication: Adenoma benign
     Dosage: 20 MG, 1X/DAY
     Dates: start: 202105

REACTIONS (3)
  - Panniculitis [Unknown]
  - Lipohypertrophy [Unknown]
  - Off label use [Unknown]

NARRATIVE: CASE EVENT DATE: 20210501
